FAERS Safety Report 6115007-6 (Version None)
Quarter: 2009Q1

REPORT INFORMATION
  Report Type: 
  Country: None (occurrence: None)
  Receive Date: 20090313
  Receipt Date: 20090312
  Transmission Date: 20090719
  Serious: Yes (Hospitalization)
  Sender: FDA-Public Use
  Company Number: A0766708A

PATIENT
  Age: 13 Month
  Sex: Male
  Weight: 12 kg

DRUGS (7)
  1. BLINDED VACCINE [Suspect]
     Route: 030
     Dates: start: 20080709, end: 20080709
  2. AMOXICILLIN [Suspect]
     Dosage: 250MG THREE TIMES PER DAY
     Route: 048
     Dates: start: 20090129, end: 20090129
  3. OPV VACCINE [Concomitant]
     Dates: start: 20071228, end: 20071228
  4. TICE BCG [Concomitant]
     Dates: start: 20071228, end: 20071228
  5. HBV VACCINE [Concomitant]
     Dates: start: 20071228, end: 20071228
  6. ROTARIX [Concomitant]
     Dates: start: 20080429, end: 20080429
  7. INFLUENZA VACCINE [Concomitant]
     Dates: start: 20080806, end: 20080806

REACTIONS (6)
  - DRUG HYPERSENSITIVITY [None]
  - GINGIVITIS [None]
  - MOUTH ULCERATION [None]
  - ORAL HERPES [None]
  - PYREXIA [None]
  - RASH ERYTHEMATOUS [None]
